FAERS Safety Report 12328885 (Version 3)
Quarter: 2016Q2

REPORT INFORMATION
  Report Type: Report from Study
  Country: US (occurrence: US)
  Receive Date: 20160503
  Receipt Date: 20160624
  Transmission Date: 20160815
  Serious: Yes (Hospitalization, Other)
  Sender: FDA-Public Use
  Company Number: US-ABBVIE-16P-163-1613762-00

PATIENT
  Age: 23 Year
  Sex: Female
  Weight: 61.29 kg

DRUGS (19)
  1. SKYLA [Concomitant]
     Active Substance: LEVONORGESTREL
     Indication: CONTRACEPTION
     Dosage: RELEASE RATE PER DAY
     Route: 015
     Dates: start: 20151221
  2. COCAINE [Concomitant]
     Active Substance: COCAINE
     Indication: DRUG ABUSE
     Dosage: 8 BOWLS, 1 IN 1 WK
     Route: 055
     Dates: start: 201512, end: 20160506
  3. BIOTIN [Concomitant]
     Active Substance: BIOTIN
     Indication: NUTRITIONAL SUPPLEMENTATION
  4. VERSED [Concomitant]
     Active Substance: MIDAZOLAM HYDROCHLORIDE
     Dosage: FOR FNA PROCEDURE
     Route: 042
     Dates: start: 20160112, end: 20160112
  5. SPIRONOLACTONE. [Concomitant]
     Active Substance: SPIRONOLACTONE
     Indication: ACNE
     Route: 048
     Dates: start: 20160215
  6. OMBITASVIR/PARITAPREVIR/RITONAVIR [Suspect]
     Active Substance: OMBITASVIR\PARITAPREVIR\RITONAVIR
     Indication: HEPATITIS C
     Dosage: 25/150/100 MG QD  (2 TABLETS IN AM QD)
     Route: 048
     Dates: start: 20160104, end: 20160328
  7. DASABUVIR [Suspect]
     Active Substance: DASABUVIR
     Indication: HEPATITIS C
     Route: 048
     Dates: start: 20160104, end: 20160328
  8. RIBAVIRIN. [Suspect]
     Active Substance: RIBAVIRIN
     Indication: HEPATITIS C
     Dosage: DIVIDED TWICE DAILY (TOTAL DAILY DOSE: 400 MG)
     Route: 048
     Dates: start: 20160119, end: 20160328
  9. VIVITROL [Concomitant]
     Active Substance: NALTREXONE
     Indication: DRUG WITHDRAWAL MAINTENANCE THERAPY
     Route: 030
     Dates: start: 20140601
  10. BIOTIN [Concomitant]
     Active Substance: BIOTIN
     Indication: NUTRITIONAL SUPPLEMENTATION
     Route: 048
     Dates: start: 20151203, end: 20160421
  11. MUCINEX [Concomitant]
     Active Substance: GUAIFENESIN
     Indication: SINUSITIS
     Route: 048
     Dates: start: 20160228, end: 20160307
  12. VICKS NYQUIL D COLD AND FLU NIGHTTIME RELIEF [Concomitant]
     Active Substance: ACETAMINOPHEN\DEXTROMETHORPHAN HYDROBROMIDE\DOXYLAMINE SUCCINATE\PSEUDOEPHEDRINE HYDROCHLORIDE
     Indication: INSOMNIA
  13. VICKS NYQUIL D COLD AND FLU NIGHTTIME RELIEF [Concomitant]
     Active Substance: ACETAMINOPHEN\DEXTROMETHORPHAN HYDROBROMIDE\DOXYLAMINE SUCCINATE\PSEUDOEPHEDRINE HYDROCHLORIDE
     Indication: SINUSITIS
     Dosage: 1/2 CAPFUL
     Route: 048
     Dates: start: 20160228, end: 20160307
  14. MARIJUANA [Concomitant]
     Active Substance: CANNABIS SATIVA SUBSP. INDICA TOP
     Indication: DRUG ABUSE
     Route: 055
     Dates: start: 2016, end: 20160421
  15. VERSED [Concomitant]
     Active Substance: MIDAZOLAM HYDROCHLORIDE
     Indication: SEDATION
     Route: 042
     Dates: start: 20160104, end: 20160104
  16. VERSED [Concomitant]
     Active Substance: MIDAZOLAM HYDROCHLORIDE
     Route: 042
     Dates: start: 20160119, end: 20160119
  17. AZITHROMYCIN ANHYDROUS. [Concomitant]
     Active Substance: AZITHROMYCIN ANHYDROUS
     Indication: ACNE
     Route: 048
     Dates: start: 20160118, end: 20160201
  18. VERSED [Concomitant]
     Active Substance: MIDAZOLAM HYDROCHLORIDE
     Dosage: FOR FNA PROCEDURE
     Route: 048
     Dates: start: 20160202, end: 20160202
  19. BENZODIAZEPINE DERIVATIVES [Concomitant]
     Active Substance: BENZODIAZEPINE
     Indication: DRUG ABUSE
     Route: 048
     Dates: start: 201601, end: 20160422

REACTIONS (2)
  - Drug dependence [Recovered/Resolved]
  - Depression [Recovered/Resolved]

NARRATIVE: CASE EVENT DATE: 20160328
